FAERS Safety Report 5208668-7 (Version None)
Quarter: 2007Q1

REPORT INFORMATION
  Report Type: 
  Country: None (occurrence: None)
  Receive Date: 20070116
  Receipt Date: 20070105
  Transmission Date: 20070707
  Serious: Yes (Hospitalization, Other)
  Sender: FDA-Public Use
  Company Number: PHHO2006FI21745

PATIENT
  Age: 66 Year
  Sex: Male
  Weight: 78 kg

DRUGS (3)
  1. ZOLEDRONIC ACID [Suspect]
     Indication: METASTASES TO BONE
     Dosage: 4MG EVERY 3 MONTHS
     Route: 042
     Dates: start: 20050118, end: 20060920
  2. VITAMIN D [Concomitant]
  3. CALCIUM [Concomitant]

REACTIONS (8)
  - BIOPSY [None]
  - BONE LESION [None]
  - GINGIVAL INFECTION [None]
  - OSTEONECROSIS [None]
  - PAIN IN JAW [None]
  - THERAPEUTIC PROCEDURE [None]
  - TOOTH EXTRACTION [None]
  - X-RAY ABNORMAL [None]
